FAERS Safety Report 8395285-3 (Version None)
Quarter: 2012Q2

REPORT INFORMATION
  Report Type: 
  Country: None (occurrence: None)
  Receive Date: 20120530
  Receipt Date: 20120528
  Transmission Date: 20120825
  Serious: Yes (Other)
  Sender: FDA-Public Use
  Company Number: PHHY2012CN045203

PATIENT
  Age: 62 Year
  Sex: Female

DRUGS (1)
  1. ZOLEDRONOC ACID [Suspect]
     Indication: OSTEOPOROSIS
     Dosage: UNK UKN, UNK
     Dates: start: 20120507

REACTIONS (5)
  - COUGH [None]
  - ANKYLOSING SPONDYLITIS [None]
  - BONE PAIN [None]
  - PYREXIA [None]
  - MUSCULOSKELETAL STIFFNESS [None]
